FAERS Safety Report 22175266 (Version 11)
Quarter: 2023Q4

REPORT INFORMATION
  Report Type: Report from Study
  Country: LB (occurrence: LB)
  Receive Date: 20230405
  Receipt Date: 20231207
  Transmission Date: 20240110
  Serious: Yes (Hospitalization)
  Sender: FDA-Public Use
  Company Number: LB-002147023-NVSC2023LB077204

PATIENT
  Age: 12 Year
  Sex: Female
  Weight: 34.5 kg

DRUGS (1)
  1. ADAKVEO [Suspect]
     Active Substance: CRIZANLIZUMAB-TMCA
     Indication: Sickle cell disease
     Dosage: 8.5 MG/KG, Q4W
     Route: 042
     Dates: start: 20221215

REACTIONS (2)
  - Encephalitis [Recovered/Resolved]
  - Extrapyramidal disorder [Recovered/Resolved]

NARRATIVE: CASE EVENT DATE: 20230401
